FAERS Safety Report 17144134 (Version 1)
Quarter: 2019Q4

REPORT INFORMATION
  Report Type: Spontaneous
  Country: US (occurrence: US)
  Receive Date: 20191211
  Receipt Date: 20191211
  Transmission Date: 20200122
  Serious: No
  Sender: FDA-Public Use
  Company Number: US-SHIRE-US201942028

PATIENT
  Age: 62 Year
  Sex: Female

DRUGS (1)
  1. XIIDRA [Suspect]
     Active Substance: LIFITEGRAST
     Indication: PRODUCT USED FOR UNKNOWN INDICATION
     Dosage: UNK
     Route: 047
     Dates: start: 20191128, end: 20191201

REACTIONS (4)
  - Photophobia [Unknown]
  - Condition aggravated [Unknown]
  - Eye pain [Unknown]
  - Sinus headache [Unknown]

NARRATIVE: CASE EVENT DATE: 20191128
